FAERS Safety Report 6157890-4 (Version None)
Quarter: 2009Q2

REPORT INFORMATION
  Report Type: 
  Country: None (occurrence: None)
  Receive Date: 20090417
  Receipt Date: 20090407
  Transmission Date: 20091009
  Serious: Yes (Death, Hospitalization)
  Sender: FDA-Public Use
  Company Number: GB-RANBAXY-2009RR-23395

PATIENT
  Age: 40 Year
  Sex: Female
  Weight: 101 kg

DRUGS (7)
  1. PARACETAMOL [Suspect]
     Dosage: 74 MG/KG, QD
  2. N-ACETYLCYSTEINE [Suspect]
     Dosage: 150 MG/KG, UNK
     Route: 042
  3. FLUOXETINE [Concomitant]
  4. METHOTREXATE [Concomitant]
  5. PREDNISOLONE [Concomitant]
     Dosage: 60 MG, QD
  6. SALBUTAMOL [Concomitant]
  7. TERBUTALINE SULFATE [Concomitant]

REACTIONS (10)
  - BRADYCARDIA [None]
  - BRAIN INJURY [None]
  - BRONCHOSPASM [None]
  - CARDIAC ARREST [None]
  - CYANOSIS [None]
  - DYSPNOEA [None]
  - INTENTIONAL OVERDOSE [None]
  - MYOCLONUS [None]
  - RESPIRATORY ARREST [None]
  - WHEEZING [None]
